FAERS Safety Report 7311425-9 (Version None)
Quarter: 2011Q1

REPORT INFORMATION
  Report Type: 
  Country: None (occurrence: None)
  Receive Date: 20110224
  Receipt Date: 20110222
  Transmission Date: 20110831
  Serious: Yes (Death)
  Sender: FDA-Public Use
  Company Number: US-B.I. PHARMACEUTICALS,INC./RIDGEFIELD-2011-BP-02055BP

PATIENT
  Age: 89 Year
  Sex: Female
  Weight: 45.36 kg

DRUGS (6)
  1. OXYCODONE [Concomitant]
     Dates: start: 20100101
  2. KEFLEX [Concomitant]
     Dates: start: 20100601
  3. TRAMADOL HCL [Concomitant]
     Dates: start: 20100101
  4. PRADAXA [Suspect]
     Indication: ATRIAL FIBRILLATION
     Dosage: 300 MG
     Dates: start: 20110107
  5. MULTI-VITAMIN [Concomitant]
  6. TOVIAZ [Concomitant]
     Dates: start: 20100601

REACTIONS (1)
  - AORTIC DISSECTION RUPTURE [None]
